FAERS Safety Report 8937839 (Version 2)
Quarter: 2012Q4

REPORT INFORMATION
  Report Type: 
  Country: AU (occurrence: AU)
  Receive Date: 20121130
  Receipt Date: 20121219
  Transmission Date: 20130627
  Serious: Yes (Other)
  Sender: FDA-Public Use
  Company Number: AU-WATSON-2012-20860

PATIENT
  Age: 41 Year
  Sex: Female

DRUGS (2)
  1. CARBOPLATIN (WATSON LABORATORIES) [Suspect]
     Indication: OVARIAN EPITHELIAL CANCER
     Dosage: UNK, unknown
     Route: 065
  2. PACLITAXEL [Suspect]
     Indication: OVARIAN EPITHELIAL CANCER
     Dosage: UNK, unknown
     Route: 065

REACTIONS (1)
  - Acute myeloid leukaemia [Recovered/Resolved]
